FAERS Safety Report 10418574 (Version 2)
Quarter: 2014Q3

REPORT INFORMATION
  Report Type: Spontaneous
  Country: US (occurrence: US)
  Receive Date: 20140829
  Receipt Date: 20140929
  Transmission Date: 20150326
  Serious: Yes (Death, Life-Threatening, Hospitalization, Other)
  Sender: FDA-Public Use
  Company Number: US-ACTELION-A-US2014-103918

PATIENT
  Age: 69 Year
  Sex: Male

DRUGS (14)
  1. SILDENAFIL [Concomitant]
     Active Substance: SILDENAFIL
     Indication: PULMONARY ARTERIAL HYPERTENSION
  2. PRAVASTATIN [Concomitant]
     Active Substance: PRAVASTATIN\PRAVASTATIN SODIUM
  3. ALBUTEROL. [Concomitant]
     Active Substance: ALBUTEROL
  4. PANTOPRAZOLE [Concomitant]
     Active Substance: PANTOPRAZOLE SODIUM
  5. PLAVIX [Concomitant]
     Active Substance: CLOPIDOGREL BISULFATE
  6. AMLODIPINE [Concomitant]
     Active Substance: AMLODIPINE BESYLATE
  7. LOVENOX [Concomitant]
     Active Substance: ENOXAPARIN SODIUM
  8. OXYGEN. [Concomitant]
     Active Substance: OXYGEN
     Dosage: UNK
     Route: 048
     Dates: start: 2014
  9. FUROSEMIDE. [Concomitant]
     Active Substance: FUROSEMIDE
  10. FLONASE [Concomitant]
     Active Substance: FLUTICASONE PROPIONATE
  11. ASPIRIN. [Concomitant]
     Active Substance: ASPIRIN
  12. IPRATROPIUM [Concomitant]
     Active Substance: IPRATROPIUM
  13. SINGULAIR [Concomitant]
     Active Substance: MONTELUKAST SODIUM
  14. OPSUMIT [Suspect]
     Active Substance: MACITENTAN
     Indication: PULMONARY ARTERIAL HYPERTENSION
     Dosage: 10 MG, QD
     Route: 048
     Dates: start: 20140801, end: 20140812

REACTIONS (7)
  - Hypoxia [Fatal]
  - Acute myocardial infarction [Unknown]
  - Cor pulmonale chronic [Fatal]
  - Respiratory failure [Unknown]
  - Dyspnoea [Fatal]
  - Endotracheal intubation [Unknown]
  - Leukocytosis [Unknown]

NARRATIVE: CASE EVENT DATE: 20140805
